FAERS Safety Report 22677615 (Version 8)
Quarter: 2024Q3

REPORT INFORMATION
  Report Type: Report from Study
  Country: US (occurrence: US)
  Receive Date: 20230706
  Receipt Date: 20240926
  Transmission Date: 20241016
  Serious: No
  Sender: NOVARTIS
  Company Number: US-002147023-NVSC2023US150436

PATIENT
  Sex: Female
  Weight: 75.737 kg

DRUGS (6)
  1. COSENTYX [Suspect]
     Active Substance: SECUKINUMAB
     Indication: Psoriasis
     Dosage: UNK
     Route: 065
  2. ATORVASTATIN [Suspect]
     Active Substance: ATORVASTATIN
     Indication: Psoriasis
     Dosage: UNK
     Route: 065
  3. ELIDEL [Suspect]
     Active Substance: PIMECROLIMUS
     Indication: Psoriasis
     Dosage: UNK
     Route: 065
  4. VITAMIN K [Suspect]
     Active Substance: PHYTONADIONE
     Indication: Psoriasis
     Dosage: UNK
     Route: 065
  5. VITAMIN D3 [Suspect]
     Active Substance: CHOLECALCIFEROL
     Indication: Psoriasis
     Dosage: UNK
     Route: 065
  6. PREDNISONE [Suspect]
     Active Substance: PREDNISONE
     Indication: Psoriasis
     Dosage: UNK
     Route: 065

REACTIONS (7)
  - Psoriasis [Unknown]
  - Psoriasis [Unknown]
  - Pruritus [Unknown]
  - Skin exfoliation [Unknown]
  - Skin plaque [Unknown]
  - Product use in unapproved indication [Unknown]
  - Drug ineffective [Unknown]
